FAERS Safety Report 12519017 (Version 5)
Quarter: 2017Q1

REPORT INFORMATION
  Report Type: Spontaneous
  Country: US (occurrence: US)
  Receive Date: 20160630
  Receipt Date: 20170120
  Transmission Date: 20170428
  Serious: Yes (Death, Congenital Anomaly, Other)
  Sender: FDA-Public Use
  Company Number: PHEH2016US016161

PATIENT
  Sex: Male

DRUGS (1)
  1. ZOFRAN [Suspect]
     Active Substance: ONDANSETRON HYDROCHLORIDE
     Indication: FOETAL EXPOSURE DURING PREGNANCY
     Dosage: MOTHER DOSE: 08 MG
     Route: 064

REACTIONS (32)
  - Atrial septal defect [Fatal]
  - Pulmonary congestion [Unknown]
  - Small intestinal haemorrhage [Unknown]
  - Urinary tract infection neonatal [Unknown]
  - Renal failure neonatal [Unknown]
  - Pain [Unknown]
  - Jaundice [Unknown]
  - Osteoporosis [Unknown]
  - Lymphatic disorder [Unknown]
  - Muscle atrophy [Unknown]
  - Anxiety [Unknown]
  - Pulmonary oedema neonatal [Unknown]
  - Peritonitis [Unknown]
  - Gastrointestinal haemorrhage [Unknown]
  - Allergic transfusion reaction [Unknown]
  - Injury [Unknown]
  - Generalised oedema [Unknown]
  - Heart disease congenital [Unknown]
  - Rash neonatal [Unknown]
  - Neonatal hepatomegaly [Unknown]
  - Foetal exposure during pregnancy [Unknown]
  - Cardiomegaly [Unknown]
  - Ocular icterus [Unknown]
  - Congenital anomaly [Unknown]
  - Bone marrow infiltration [Unknown]
  - Histiocytosis haematophagic [Unknown]
  - Hypoplastic left heart syndrome [Fatal]
  - Fever neonatal [Unknown]
  - Thrombotic microangiopathy [Unknown]
  - Cerebral atrophy [Unknown]
  - Emotional distress [Unknown]
  - Peritoneal adhesions [Unknown]
